FAERS Safety Report 19496159 (Version 3)
Quarter: 2021Q3

REPORT INFORMATION
  Report Type: Report from Study
  Country: CN (occurrence: CN)
  Receive Date: 20210706
  Receipt Date: 20210805
  Transmission Date: 20211014
  Serious: Yes (Other)
  Sender: FDA-Public Use
  Company Number: NVSC2021CN144779

PATIENT
  Age: 57 Year
  Sex: Male
  Weight: 63 kg

DRUGS (3)
  1. ZOLEDRONIC ACID [Suspect]
     Active Substance: ZOLEDRONIC ACID
     Indication: PROPHYLAXIS
     Dosage: UNK, QMO (EVERY MONTH)
     Route: 065
  2. ZYKADIA [Suspect]
     Active Substance: CERITINIB
     Indication: NON-SMALL CELL LUNG CANCER
     Dosage: 450 MG, QD
     Route: 048
     Dates: start: 20190603, end: 202107
  3. ALECTINIB. [Concomitant]
     Active Substance: ALECTINIB
     Indication: PRODUCT USED FOR UNKNOWN INDICATION
     Dosage: UNK
     Route: 065

REACTIONS (4)
  - Metastases to central nervous system [Not Recovered/Not Resolved]
  - Gait inability [Recovering/Resolving]
  - Cerebral haemorrhage [Not Recovered/Not Resolved]
  - Metastases to bone [Not Recovered/Not Resolved]

NARRATIVE: CASE EVENT DATE: 2016
